FAERS Safety Report 21786726 (Version 2)
Quarter: 2023Q1

REPORT INFORMATION
  Report Type: Report from Study
  Country: CA (occurrence: CA)
  Receive Date: 20221228
  Receipt Date: 20230101
  Transmission Date: 20230417
  Serious: Yes (Other)
  Sender: FDA-Public Use
  Company Number: CA-CELLTRION INC.-2022CA021716

PATIENT

DRUGS (1)
  1. TRUXIMA [Suspect]
     Active Substance: RITUXIMAB-ABBS
     Indication: Immune thrombocytopenia
     Dosage: 375 MG//M2 PER DOSE = 560 MG PER DOSE, WEEKLY X 4 DOSES

REACTIONS (2)
  - Immune thrombocytopenia [Unknown]
  - Off label use [Unknown]
